FAERS Safety Report 15821243 (Version 3)
Quarter: 2022Q4

REPORT INFORMATION
  Report Type: Spontaneous
  Country: DK (occurrence: DK)
  Receive Date: 20190114
  Receipt Date: 20221018
  Transmission Date: 20230112
  Serious: Yes (Hospitalization, Disabling)
  Sender: FDA-Public Use
  Company Number: DK-DKMA-WBS-0021042

PATIENT
  Age: 54 Year
  Sex: Male
  Weight: 100 kg

DRUGS (8)
  1. XARELTO [Suspect]
     Active Substance: RIVAROXABAN
     Indication: Thrombosis prophylaxis
     Dosage: 20 MG, QD
     Route: 048
     Dates: start: 20180612, end: 20180620
  2. FUROSEMID ACCORD [Concomitant]
     Indication: Diuretic therapy
     Dosage: STRENGTH: 40 MG
     Route: 048
     Dates: start: 20180614
  3. FUROSEMIDE [Concomitant]
     Active Substance: FUROSEMIDE
     Indication: Diuretic therapy
     Route: 048
     Dates: start: 20180614
  4. RAMIPRIL [Concomitant]
     Active Substance: RAMIPRIL
     Indication: Hypertension
     Route: 048
     Dates: start: 20180614
  5. POTASSIUM CHLORIDE [Concomitant]
     Active Substance: POTASSIUM CHLORIDE
     Indication: Mineral supplementation
     Route: 048
     Dates: start: 20180614
  6. AMLODIPINE [Concomitant]
     Active Substance: AMLODIPINE BESYLATE
     Indication: Hypertension
     Route: 048
     Dates: start: 20180614, end: 20181121
  7. RAMIPRIL [Concomitant]
     Active Substance: RAMIPRIL
     Indication: Hypertension
     Route: 048
     Dates: start: 20141124
  8. RAMIPRIL [Concomitant]
     Active Substance: RAMIPRIL
     Route: 048
     Dates: start: 20180613

REACTIONS (11)
  - Cerebral haemorrhage [Recovering/Resolving]
  - Cerebral microhaemorrhage [Recovering/Resolving]
  - Hemiparesis [Not Recovered/Not Resolved]
  - Hemiparesis [Recovering/Resolving]
  - Gait disturbance [Recovering/Resolving]
  - Hemihypoaesthesia [Not Recovered/Not Resolved]
  - Hemiparesis [Recovering/Resolving]
  - Sensory disturbance [Recovering/Resolving]
  - Hemiparesis [Recovering/Resolving]
  - Gait disturbance [Recovering/Resolving]
  - Eye movement disorder [Unknown]

NARRATIVE: CASE EVENT DATE: 20180101
